FAERS Safety Report 19120426 (Version 2)
Quarter: 2021Q2

REPORT INFORMATION
  Report Type: Spontaneous
  Country: US (occurrence: US)
  Receive Date: 20210412
  Receipt Date: 20210623
  Transmission Date: 20210717
  Serious: No
  Sender: FDA-Public Use
  Company Number: US-SA-2021SA119184

PATIENT
  Age: 56 Year
  Sex: Male

DRUGS (1)
  1. DUPIXENT [Suspect]
     Active Substance: DUPILUMAB
     Indication: DERMATITIS ATOPIC
     Dosage: 300 MG
     Route: 058

REACTIONS (5)
  - Adverse drug reaction [Unknown]
  - Eye pruritus [Unknown]
  - Nasopharyngitis [Unknown]
  - Lacrimation increased [Unknown]
  - Rhinorrhoea [Unknown]
